FAERS Safety Report 8717701 (Version 3)
Quarter: 2012Q4

REPORT INFORMATION
  Report Type: 
  Country: FR (occurrence: FR)
  Receive Date: 20120810
  Receipt Date: 20120907
  Transmission Date: 20130627
  Serious: Yes (Hospitalization)
  Sender: FDA-Public Use
  Company Number: FR-ROCHE-1093724

PATIENT
  Age: 61 Year
  Sex: Female
  Weight: 52 kg

DRUGS (5)
  1. PEGASYS [Suspect]
     Indication: HEPATITIS C
     Route: 058
     Dates: start: 20120117
  2. PEGASYS [Suspect]
     Route: 058
     Dates: start: 20120426, end: 20120703
  3. COPEGUS [Suspect]
     Indication: HEPATITIS C
     Route: 048
     Dates: start: 20120117
  4. COPEGUS [Suspect]
     Route: 048
     Dates: start: 20120426, end: 20120703
  5. STAGID [Concomitant]
     Indication: DIABETES MELLITUS

REACTIONS (7)
  - Thrombocytopenia [Recovering/Resolving]
  - Leukopenia [Recovered/Resolved]
  - Anaemia [Recovered/Resolved]
  - Gingival bleeding [Recovered/Resolved]
  - Epistaxis [Recovered/Resolved]
  - Ecchymosis [Recovered/Resolved]
  - Rectal haemorrhage [Recovered/Resolved]
